FAERS Safety Report 6842955-1 (Version None)
Quarter: 2010Q3

REPORT INFORMATION
  Report Type: 
  Country: None (occurrence: None)
  Receive Date: 20100714
  Receipt Date: 20070808
  Transmission Date: 20110219
  Serious: No
  Sender: FDA-Public Use
  Company Number: US-PFIZER INC-2007066812

PATIENT
  Sex: Male
  Weight: 77.1 kg

DRUGS (10)
  1. CHANTIX [Suspect]
     Indication: SMOKING CESSATION THERAPY
     Route: 048
     Dates: start: 20070803
  2. PRILOSEC [Concomitant]
  3. HYDROCHLOROTHIAZIDE [Concomitant]
  4. KLOR-CON [Concomitant]
  5. NEXIUM [Concomitant]
  6. FEXOFENADINE [Concomitant]
  7. FOSAMAX [Concomitant]
  8. ACETYLSALICYLIC ACID [Concomitant]
  9. LISINOPRIL [Concomitant]
  10. IBUPROFEN [Concomitant]

REACTIONS (2)
  - LETHARGY [None]
  - SOMNOLENCE [None]
